FAERS Safety Report 4730529-8 (Version None)
Quarter: 2005Q3

REPORT INFORMATION
  Report Type: 
  Country: None (occurrence: None)
  Receive Date: 20050801
  Receipt Date: 20050722
  Transmission Date: 20060218
  Serious: Yes (Death)
  Sender: FDA-Public Use
  Company Number: US-ABBOTT-05P-163-0306348-00

PATIENT
  Sex: Female

DRUGS (15)
  1. HYTRIN [Suspect]
     Indication: BLOOD PRESSURE INCREASED
     Route: 048
     Dates: start: 20040423
  2. CELECOXIB [Concomitant]
     Indication: ARTHRITIS
     Route: 048
  3. DETROL LA [Concomitant]
     Indication: URINARY INCONTINENCE
     Route: 048
  4. RANITIDINE HYDROCHLORIDE [Concomitant]
     Indication: GASTROOESOPHAGEAL REFLUX DISEASE
     Route: 048
  5. ALPRAZOLAM [Concomitant]
     Indication: SLEEP DISORDER THERAPY
     Route: 048
  6. ATENOLOL [Concomitant]
     Indication: BLOOD PRESSURE INCREASED
     Route: 048
  7. OXYCOCET [Concomitant]
     Indication: PAIN
     Dosage: 5/325 MG
     Route: 048
  8. ZOLPIDEM TARTRATE [Concomitant]
     Indication: INSOMNIA
     Route: 048
  9. LISINOPRIL [Concomitant]
     Indication: BLOOD PRESSURE INCREASED
     Route: 048
  10. ATORVASTATIN CALCIUM [Concomitant]
     Indication: BLOOD CHOLESTEROL INCREASED
     Route: 048
  11. COUMADIN [Concomitant]
     Indication: THROMBOSIS
     Route: 048
  12. GABAPENTIN [Concomitant]
     Indication: NERVE INJURY
     Route: 048
  13. INSULIN LISPRO [Concomitant]
     Indication: DIABETES MELLITUS
     Route: 058
  14. INSULIN GLARGINE [Concomitant]
     Indication: DIABETES MELLITUS
     Route: 058
  15. HYDROCHLOROTHIAZIDE [Concomitant]
     Indication: BLOOD PRESSURE INCREASED
     Route: 048

REACTIONS (1)
  - LOCALISED INFECTION [None]
